FAERS Safety Report 9170068 (Version 3)
Quarter: 2013Q2

REPORT INFORMATION
  Report Type: Spontaneous
  Country: US (occurrence: None)
  Receive Date: 20130307
  Receipt Date: 20130513
  Transmission Date: 20140414
  Serious: Yes (Hospitalization)
  Sender: FDA-Public Use
  Company Number: US-JNJFOC-20121001114

PATIENT
  Age: 62 Year
  Sex: Male
  Weight: 70 kg

DRUGS (29)
  1. DACOGEN [Suspect]
     Indication: ACUTE MYELOID LEUKAEMIA
     Route: 042
     Dates: start: 20120813
  2. VELCADE [Suspect]
     Indication: ACUTE MYELOID LEUKAEMIA
     Route: 058
     Dates: start: 20120813, end: 20120823
  3. ALLOPURINOL [Concomitant]
  4. ATORVASTATIN (ATORVASTATIN) [Concomitant]
  5. CHOLECALCIFEROL (COLECALCIFEROL) [Concomitant]
  6. CIPROFLOXACIN (CIPROFLOXACIN) [Concomitant]
  7. CYANOCOBALAMIN (CYANOCOBALAMIN) [Concomitant]
  8. ESOMEPRAZOLE (ESOMEPRAZOLE) [Concomitant]
  9. GLIPIZIDE (GLIPIZIDE) [Concomitant]
  10. HEPARIN FLUSH (HEPARIN SODIUM) [Concomitant]
  11. LINAGLIPTIN (DRUG USED IN DIABETES) [Concomitant]
  12. LISINOPRIL (LISINOPRIL) [Concomitant]
  13. LORAZEPAM (LORAZEPAM) [Concomitant]
  14. ONDANSETRON HCL (ONDANSETRON HYDROCHLORIDE) [Concomitant]
  15. PROCHLORPERAZINE MALEATE (PROCHLORPERAZINE MALEATE) [Concomitant]
  16. SARNA (SARNA) [Concomitant]
  17. VERAPAMIL SR NOS (VERAPAMIL) [Concomitant]
  18. ATIVAN (LORAZEPAM) [Concomitant]
  19. CEFEPIME (CEFEPIME) [Concomitant]
  20. COLACE [Concomitant]
  21. COMPAZINE (PROCHLORPERAZINE EDISYLATE) [Concomitant]
  22. DOXYCYCLINE (DOXYCYCLINE) [Concomitant]
  23. IMIPENEM (IMIPENEM) [Concomitant]
  24. INSULIN (INSULIN) [Concomitant]
  25. MICAFUNGIN (MICAFUNGIN) [Concomitant]
  26. OMEPRAZOLE (OMEPRAZOLE) [Concomitant]
  27. TYLENOL (PARACETAMOL) [Concomitant]
  28. VANCOMYCIN (VANCOMYCIN) [Concomitant]
  29. VERAPAMIL (VERAPAMIL) [Concomitant]

REACTIONS (17)
  - Hypotension [None]
  - Sepsis [None]
  - Pneumonia [None]
  - Febrile neutropenia [None]
  - Rash maculo-papular [None]
  - Hypoxia [None]
  - Enterocolitis [None]
  - Dermatitis exfoliative [None]
  - Hyperglycaemia [None]
  - Hyponatraemia [None]
  - Hypoalbuminaemia [None]
  - Hypocalcaemia [None]
  - Tachycardia [None]
  - Bacillus infection [None]
  - Fluid overload [None]
  - Skin exfoliation [None]
  - Pruritus [None]
